FAERS Safety Report 20856337 (Version 3)
Quarter: 2022Q2

REPORT INFORMATION
  Report Type: Spontaneous
  Country: US (occurrence: US)
  Receive Date: 20220520
  Receipt Date: 20220627
  Transmission Date: 20220720
  Serious: No
  Sender: FDA-Public Use
  Company Number: US-SA-SAC20220513000127

PATIENT
  Age: 70 Year
  Sex: Female

DRUGS (8)
  1. DUPIXENT [Suspect]
     Active Substance: DUPILUMAB
     Indication: Neurodermatitis
     Dosage: 200 MG, QOW
     Route: 058
     Dates: start: 20220225
  2. DUPIXENT [Suspect]
     Active Substance: DUPILUMAB
     Indication: Chronic rhinosinusitis with nasal polyps
  3. DILTIAZEM [Suspect]
     Active Substance: DILTIAZEM
     Indication: Rectal spasm
  4. VITAMIN D3 [Concomitant]
     Active Substance: CHOLECALCIFEROL
  5. MOMETASONE FUROATE [Concomitant]
     Active Substance: MOMETASONE FUROATE
  6. ARNUITY ELLIPTA [Concomitant]
     Active Substance: FLUTICASONE FUROATE
  7. MILK OF MAGNESIA [Concomitant]
     Active Substance: MAGNESIUM HYDROXIDE
  8. BLINK GEL TEARS [Concomitant]
     Active Substance: POLYETHYLENE GLYCOL 400

REACTIONS (28)
  - Headache [Unknown]
  - Tremor [Unknown]
  - Toothache [Unknown]
  - Alopecia [Unknown]
  - Fluid retention [Unknown]
  - Dry throat [Unknown]
  - Photosensitivity reaction [Unknown]
  - Paranasal sinus hyposecretion [Unknown]
  - Pain in jaw [Unknown]
  - Rectal spasm [Unknown]
  - Dizziness [Unknown]
  - Constipation [Unknown]
  - Swelling of eyelid [Unknown]
  - Pain in extremity [Unknown]
  - Sleep disorder [Unknown]
  - Abdominal pain upper [Unknown]
  - Musculoskeletal stiffness [Unknown]
  - Taste disorder [Recovered/Resolved]
  - Parosmia [Recovered/Resolved]
  - Feeling abnormal [Unknown]
  - Arthritis [Unknown]
  - Dry skin [Unknown]
  - Abdominal discomfort [Unknown]
  - Erythema of eyelid [Unknown]
  - Arthralgia [Unknown]
  - Dry eye [Unknown]
  - Product use issue [Unknown]
  - Product prescribing issue [Unknown]

NARRATIVE: CASE EVENT DATE: 20220225
